FAERS Safety Report 8262807 (Version 2)
Quarter: 2013Q2

REPORT INFORMATION
  Report Type: Spontaneous
  Country: US (occurrence: US)
  Receive Date: 20111124
  Receipt Date: 20130510
  Transmission Date: 20140414
  Serious: Yes (Other)
  Sender: FDA-Public Use
  Company Number: US-ROCHE-1015970

PATIENT
  Age: 37 Year
  Sex: Male

DRUGS (1)
  1. ACCUTANE [Suspect]
     Indication: ACNE
     Route: 065
     Dates: start: 19870514, end: 19870903

REACTIONS (5)
  - Crohn^s disease [Unknown]
  - Inflammatory bowel disease [Unknown]
  - Injury [Unknown]
  - Anal fissure [Unknown]
  - Diverticulitis [Unknown]
